FAERS Safety Report 12010212 (Version 1)
Quarter: 2016Q1

REPORT INFORMATION
  Report Type: Spontaneous
  Country: NO (occurrence: NO)
  Receive Date: 20160205
  Receipt Date: 20160205
  Transmission Date: 20160526
  Serious: Yes (Other)
  Sender: FDA-Public Use
  Company Number: NO-PFIZER INC-2016062255

PATIENT
  Age: 39 Year
  Sex: Female

DRUGS (1)
  1. CHAMPIX [Suspect]
     Active Substance: VARENICLINE TARTRATE
     Dosage: UNK

REACTIONS (5)
  - Apathy [Recovering/Resolving]
  - Depression [Recovering/Resolving]
  - Dermatitis bullous [Recovered/Resolved]
  - Crying [Recovered/Resolved]
  - Personality change [Recovering/Resolving]
